FAERS Safety Report 4326191-9 (Version None)
Quarter: 2004Q1

REPORT INFORMATION
  Report Type: 
  Country: None (occurrence: None)
  Receive Date: 20040324
  Receipt Date: 20040309
  Transmission Date: 20041129
  Serious: Yes (Hospitalization)
  Sender: FDA-Public Use
  Company Number: 04P-028-0252947-00

PATIENT
  Age: 73 Year
  Sex: Male

DRUGS (18)
  1. BIAXIN [Suspect]
     Indication: CHRONIC OBSTRUCTIVE AIRWAYS DISEASE EXACERBATED
     Dosage: 1000 MG, 1 IN 1 D, PER ORAL
     Route: 048
     Dates: start: 20040223, end: 20040224
  2. DOXYCYCLINE [Suspect]
     Indication: CHRONIC OBSTRUCTIVE AIRWAYS DISEASE EXACERBATED
     Dosage: 100 MG, 2 IN 1 D, PER ORAL
     Route: 048
     Dates: start: 20040223, end: 20040224
  3. PREDNISONE [Suspect]
     Indication: CHRONIC OBSTRUCTIVE AIRWAYS DISEASE EXACERBATED
     Dosage: 40 MG, 1 IN 1 D, PER ORAL
     Route: 048
     Dates: start: 20040223, end: 20040224
  4. PLACEBO [Suspect]
     Indication: CHRONIC OBSTRUCTIVE AIRWAYS DISEASE EXACERBATED
     Dosage: PER ORAL
     Route: 048
     Dates: start: 20040223, end: 20040224
  5. HUMULIN 70/30 [Concomitant]
  6. IPRATROPIUM BROMIDE [Concomitant]
  7. ADVAIR DISKUS 100/50 [Concomitant]
  8. ALBUTEROL SULFATE [Concomitant]
  9. ASPIRIN [Concomitant]
  10. FUROSEMIDE [Concomitant]
  11. OMEPRAZOLE [Concomitant]
  12. THEO-DUR [Concomitant]
  13. PERINDOPRIL [Concomitant]
  14. DIDRONEL PMO ^NORWICH EATON^ [Concomitant]
  15. GLYCERYL TRINITRATE [Concomitant]
  16. IBUPROFEN [Concomitant]
  17. ACETYLCYSTEINE [Concomitant]
  18. QUININE [Concomitant]

REACTIONS (7)
  - BLOOD CREATINE PHOSPHOKINASE INCREASED [None]
  - BLOOD GLUCOSE INCREASED [None]
  - CHRONIC OBSTRUCTIVE AIRWAYS DISEASE EXACERBATED [None]
  - DYSPNOEA EXACERBATED [None]
  - FATIGUE [None]
  - FEELING ABNORMAL [None]
  - RESTLESSNESS [None]
